FAERS Safety Report 9120312 (Version 2)
Quarter: 2013Q4

REPORT INFORMATION
  Report Type: Spontaneous
  Country: US (occurrence: US)
  Receive Date: 20130226
  Receipt Date: 20131022
  Transmission Date: 20140711
  Serious: No
  Sender: FDA-Public Use
  Company Number: US-009507513-1302USA011914

PATIENT
  Age: 57 Year
  Sex: Female

DRUGS (3)
  1. REBETOL [Suspect]
     Indication: HEPATITIS C
     Dosage: UNK
     Route: 048
     Dates: start: 20121025, end: 20130509
  2. VICTRELIS [Suspect]
     Indication: HEPATITIS C
     Dosage: UNK
     Route: 048
     Dates: start: 20121122, end: 20130509
  3. PEGASYS [Suspect]
     Indication: HEPATITIS C
     Dosage: UNK
     Dates: start: 20121025, end: 20130509

REACTIONS (6)
  - Hypertension [Unknown]
  - Eye disorder [Unknown]
  - White blood cell count decreased [Unknown]
  - Fatigue [Unknown]
  - Hypoaesthesia [Unknown]
  - Alopecia [Unknown]
